FAERS Safety Report 4307486-1 (Version None)
Quarter: 2004Q1

REPORT INFORMATION
  Report Type: 
  Country: None (occurrence: None)
  Receive Date: 20040226
  Receipt Date: 20040220
  Transmission Date: 20041129
  Serious: Yes (Hospitalization)
  Sender: FDA-Public Use
  Company Number: DK-JNJFOC-20040204357

PATIENT
  Age: 66 Year
  Sex: Female
  Weight: 80 kg

DRUGS (2)
  1. REMICADE [Suspect]
     Indication: RHEUMATOID ARTHRITIS
     Dosage: 240 MG, INTRAVENOUS
     Route: 042
     Dates: start: 20030122, end: 20030123
  2. REMICADE [Suspect]
     Indication: RHEUMATOID ARTHRITIS
     Dosage: 240 MG, INTRAVENOUS
     Route: 042
     Dates: start: 20030527, end: 20030709

REACTIONS (3)
  - BODY TEMPERATURE DECREASED [None]
  - TYPE IV HYPERSENSITIVITY REACTION [None]
  - URTICARIA [None]
